FAERS Safety Report 5157212-1 (Version None)
Quarter: 2006Q4

REPORT INFORMATION
  Report Type: 
  Country: None (occurrence: None)
  Receive Date: 20061127
  Receipt Date: 20060608
  Transmission Date: 20070319
  Serious: Yes (Other)
  Sender: FDA-Public Use
  Company Number: US-AMGEN-STX182386

PATIENT
  Sex: Female
  Weight: 123 kg

DRUGS (5)
  1. ENBREL [Suspect]
     Indication: PSORIATIC ARTHROPATHY
     Route: 058
     Dates: start: 20060518
  2. ARTHROTEC [Suspect]
     Dates: end: 20060501
  3. PRILOSEC [Concomitant]
  4. HYZAAR [Concomitant]
  5. ALLEGRA [Concomitant]

REACTIONS (4)
  - ARTHRALGIA [None]
  - HAEMATOCHEZIA [None]
  - OEDEMA PERIPHERAL [None]
  - RECTAL HAEMORRHAGE [None]
